FAERS Safety Report 6897139-8 (Version None)
Quarter: 2010Q3

REPORT INFORMATION
  Report Type: 
  Country: None (occurrence: None)
  Receive Date: 20100802
  Receipt Date: 20070412
  Transmission Date: 20110219
  Serious: No
  Sender: FDA-Public Use
  Company Number: US-PFIZER INC-2007029486

PATIENT
  Sex: Female
  Weight: 61.7 kg

DRUGS (6)
  1. LYRICA [Suspect]
     Indication: FACIAL PAIN
     Dates: start: 20070323
  2. LYRICA [Suspect]
     Indication: TRIGEMINAL NERVE DISORDER
  3. DIOVANE [Concomitant]
  4. NIFEDIPINE [Concomitant]
  5. FUROSEMIDE [Concomitant]
  6. CLONIDINE [Concomitant]

REACTIONS (4)
  - DRUG INEFFECTIVE [None]
  - DRY EYE [None]
  - HYPOACUSIS [None]
  - VISION BLURRED [None]
